FAERS Safety Report 23425405 (Version 3)
Quarter: 2024Q1

REPORT INFORMATION
  Report Type: Spontaneous
  Country: CZ (occurrence: CZ)
  Receive Date: 20240122
  Receipt Date: 20240201
  Transmission Date: 20240409
  Serious: Yes (Hospitalization, Other)
  Sender: FDA-Public Use
  Company Number: CZ-AMGEN-CZESP2023171295

PATIENT
  Age: 56 Year
  Sex: Male

DRUGS (11)
  1. FILGRASTIM [Suspect]
     Active Substance: FILGRASTIM
     Indication: Product used for unknown indication
     Dosage: UNK
     Route: 065
  2. FLUOROURACIL [Concomitant]
     Active Substance: FLUOROURACIL
     Dosage: 2400 MILLIGRAM PER SQUARE METRE, Q2WK (CONTINUOUS 46-HOUR IV ADMINISTRATION)
     Route: 042
  3. FLUOROURACIL [Concomitant]
     Active Substance: FLUOROURACIL
     Indication: Adenocarcinoma of colon
     Dosage: 400 MILLIGRAM PER SQUARE METRE, ON DAY 1
     Route: 042
     Dates: start: 202004
  4. AFLIBERCEPT [Concomitant]
     Active Substance: AFLIBERCEPT
     Indication: Adenocarcinoma of colon
     Dosage: 4 MILLIGRAM PER KILOGRAM, ON DAY 1
     Route: 065
     Dates: start: 202010
  5. BEVACIZUMAB [Concomitant]
     Active Substance: BEVACIZUMAB
     Indication: Adenocarcinoma of colon
     Dosage: 5 MILLIGRAM PER KILOGRAM, ON DAY 1
     Route: 065
     Dates: start: 202004
  6. LEUCOVORIN CALCIUM [Concomitant]
     Active Substance: LEUCOVORIN CALCIUM
     Indication: Adenocarcinoma of colon
     Dosage: 400 MILLIGRAM PER SQUARE METRE, ON DAY 1
     Route: 065
     Dates: start: 202004
  7. IRINOTECAN [Concomitant]
     Active Substance: IRINOTECAN
     Indication: Adenocarcinoma of colon
     Dosage: 180 MILLIGRAM PER SQUARE METRE, ON DAY 1
     Route: 065
     Dates: start: 202010
  8. OXALIPLATIN [Concomitant]
     Active Substance: OXALIPLATIN
     Indication: Adenocarcinoma of colon
     Dosage: 85 MILLIGRAM PER SQUARE METRE, ON DAY 1
     Route: 065
     Dates: start: 202004
  9. TIPIRACIL HYDROCHLORIDE\TRIFLURIDINE [Concomitant]
     Active Substance: TIPIRACIL HYDROCHLORIDE\TRIFLURIDINE
     Indication: Adenocarcinoma of colon
     Dosage: 60 MILLIGRAM, BID
     Route: 065
  10. TIPIRACIL HYDROCHLORIDE\TRIFLURIDINE [Concomitant]
     Active Substance: TIPIRACIL HYDROCHLORIDE\TRIFLURIDINE
     Dosage: 60 MILLIGRAM, BID
     Route: 065
  11. TIPIRACIL HYDROCHLORIDE\TRIFLURIDINE [Concomitant]
     Active Substance: TIPIRACIL HYDROCHLORIDE\TRIFLURIDINE
     Dosage: 70 MILLIGRAM, BID (ON D1-5 AND D8-12 EVERY FOUR WEEKS)
     Route: 065
     Dates: start: 202112

REACTIONS (12)
  - Obstructive pancreatitis [Recovered/Resolved]
  - Neuropathy peripheral [Recovered/Resolved]
  - Adenocarcinoma of colon [Recovered/Resolved]
  - Thrombocytopenia [Recovered/Resolved]
  - Neutropenia [Recovering/Resolving]
  - Rectal tenesmus [Recovered/Resolved]
  - Ill-defined disorder [Recovered/Resolved]
  - Infection [Recovered/Resolved]
  - Haematotoxicity [Recovered/Resolved]
  - Diarrhoea [Recovered/Resolved]
  - Anaemia [Recovered/Resolved]
  - Nausea [Recovered/Resolved]

NARRATIVE: CASE EVENT DATE: 20200101
